APPROVED DRUG PRODUCT: NEBIVOLOL HYDROCHLORIDE
Active Ingredient: NEBIVOLOL HYDROCHLORIDE
Strength: EQ 5MG BASE
Dosage Form/Route: TABLET;ORAL
Application: A208717 | Product #002 | TE Code: AB
Applicant: CADILA PHARMACEUTICALS LTD
Approved: Dec 17, 2021 | RLD: No | RS: No | Type: RX